FAERS Safety Report 4465432-4 (Version None)
Quarter: 2004Q4

REPORT INFORMATION
  Report Type: 
  Country: None (occurrence: None)
  Receive Date: 20041004
  Receipt Date: 20040922
  Transmission Date: 20050328
  Serious: Yes (Hospitalization)
  Sender: FDA-Public Use
  Company Number: FR-GLAXOSMITHKLINE-B0346075A

PATIENT
  Age: 52 Year
  Sex: Male
  Weight: 75 kg

DRUGS (6)
  1. EPIVIR [Suspect]
     Indication: HIV INFECTION
     Dosage: 300MG PER DAY
     Route: 048
     Dates: start: 20030106
  2. ZIAGEN [Suspect]
     Indication: HIV INFECTION
     Dosage: 600MG PER DAY
     Route: 048
     Dates: start: 20030106
  3. KALETRA [Suspect]
     Indication: HIV INFECTION
     Dosage: 800MG PER DAY
     Route: 048
     Dates: start: 20030106
  4. VIDEX [Suspect]
     Indication: HIV INFECTION
     Route: 048
  5. VIRACEPT [Suspect]
     Indication: HIV INFECTION
     Route: 048
  6. ZERIT [Suspect]
     Indication: HIV INFECTION
     Route: 048

REACTIONS (2)
  - DIZZINESS [None]
  - VESTIBULAR NEURONITIS [None]
